FAERS Safety Report 12321364 (Version 1)
Quarter: 2016Q2

REPORT INFORMATION
  Report Type: Spontaneous
  Country: US (occurrence: None)
  Receive Date: 20160429
  Receipt Date: 20160429
  Transmission Date: 20160815
  Serious: Yes (Disabling)
  Sender: FDA-Public Use
  Company Number: None

PATIENT
  Age: 29 Year
  Sex: Female
  Weight: 60.78 kg

DRUGS (1)
  1. AMPHETAMINE SALTS 30MG TABLET, 30 MG [Suspect]
     Active Substance: AMPHETAMINE ASPARTATE\AMPHETAMINE SULFATE\DEXTROAMPHETAMINE SACCHARATE\DEXTROAMPHETAMINE SULFATE
     Indication: ATTENTION DEFICIT/HYPERACTIVITY DISORDER
     Route: 048
     Dates: start: 20160418

REACTIONS (10)
  - Disturbance in attention [None]
  - Headache [None]
  - Drug ineffective [None]
  - Depressed mood [None]
  - Pain [None]
  - Anxiety [None]
  - Hunger [None]
  - Product substitution issue [None]
  - Asthenia [None]
  - Memory impairment [None]

NARRATIVE: CASE EVENT DATE: 20160419
